FAERS Safety Report 8471445-8 (Version None)
Quarter: 2012Q2

REPORT INFORMATION
  Report Type: 
  Country: None (occurrence: None)
  Receive Date: 20120323
  Receipt Date: 20110930
  Transmission Date: 20120825
  Serious: Yes (Other)
  Sender: FDA-Public Use
  Company Number: 163-21880-11100358

PATIENT
  Age: 79 Year
  Sex: Female

DRUGS (10)
  1. FOSAMAX (ALENDRONATE SODIUM) (UNKNOWN) [Concomitant]
  2. REVLIMID [Suspect]
     Indication: MULTIPLE MYELOMA
     Dosage: 25 MG, 1 IN 1 D, PO 15 MG, X 21, PO TEMPORARILY INTERRUPTED
     Route: 048
     Dates: start: 20110901
  3. REVLIMID [Suspect]
     Indication: MULTIPLE MYELOMA
     Dosage: 25 MG, 1 IN 1 D, PO 15 MG, X 21, PO TEMPORARILY INTERRUPTED
     Route: 048
     Dates: start: 20110609
  4. MULTI MEGA MINERALS (GNC ULTRA MEGA GOLD) (UNKNOWN) [Concomitant]
  5. ZOCOR (SIMVASTATIN) (UNKNOWN) [Concomitant]
  6. LISINOPRIL [Concomitant]
  7. AMBIEN [Concomitant]
  8. VITAMIN E-200 (TOCOPHEROL) (UNKNOWN) [Concomitant]
  9. FISH OIL (FISH OIL) (UNKNOWN) [Concomitant]
  10. VITAMIN C (ASCORBIC ACID) (UNKNOWN) [Concomitant]

REACTIONS (6)
  - DECREASED APPETITE [None]
  - HAEMOGLOBIN DECREASED [None]
  - NEUTROPENIA [None]
  - ASTHENIA [None]
  - MUSCLE SPASMS [None]
  - DEPRESSION [None]
